FAERS Safety Report 19964469 (Version 2)
Quarter: 2022Q2

REPORT INFORMATION
  Report Type: Report from Study
  Country: US (occurrence: US)
  Receive Date: 20211018
  Receipt Date: 20220513
  Transmission Date: 20220721
  Serious: No
  Sender: FDA-Public Use
  Company Number: US-NOVARTISTESTPH-NVSC2021US236046

PATIENT
  Sex: Female

DRUGS (1)
  1. ENTRESTO [Suspect]
     Active Substance: SACUBITRIL\VALSARTAN
     Indication: Diplopia
     Dosage: UNK
     Route: 065

REACTIONS (5)
  - Diplopia [Unknown]
  - Vision blurred [Unknown]
  - Hypoacusis [Unknown]
  - Visual impairment [Unknown]
  - Product use in unapproved indication [Unknown]
